FAERS Safety Report 15305786 (Version 1)
Quarter: 2018Q3

REPORT INFORMATION
  Report Type: Spontaneous
  Country: US (occurrence: US)
  Receive Date: 20180822
  Receipt Date: 20180822
  Transmission Date: 20181010
  Serious: No
  Sender: FDA-Public Use
  Company Number: US-BAYER-2018-157881

PATIENT
  Sex: Female

DRUGS (1)
  1. MIRALAX [Suspect]
     Active Substance: POLYETHYLENE GLYCOL 3350
     Indication: GASTROINTESTINAL DISORDER
     Dosage: ;17GS INTO 8 OUNCES OF BEVERAGE DOSE
     Route: 048

REACTIONS (2)
  - Product use issue [Unknown]
  - Drug ineffective [Not Recovered/Not Resolved]
